FAERS Safety Report 15785284 (Version 1)
Quarter: 2019Q1

REPORT INFORMATION
  Report Type: Spontaneous
  Country: NL (occurrence: NL)
  Receive Date: 20190103
  Receipt Date: 20190103
  Transmission Date: 20190417
  Serious: Yes (Other)
  Sender: FDA-Public Use
  Company Number: NL-MYLANLABS-2018M1096331

PATIENT
  Sex: Female

DRUGS (1)
  1. ALPRAZOLAM. [Suspect]
     Active Substance: ALPRAZOLAM
     Indication: PRODUCT USED FOR UNKNOWN INDICATION
     Dosage: UNK
     Dates: start: 2015, end: 201703

REACTIONS (7)
  - Arthralgia [Unknown]
  - Dysphagia [Unknown]
  - Eye disorder [Unknown]
  - Dyspnoea [Unknown]
  - Muscle twitching [Unknown]
  - Musculoskeletal discomfort [Unknown]
  - Paraesthesia [Unknown]

NARRATIVE: CASE EVENT DATE: 201703
